FAERS Safety Report 24240170 (Version 1)
Quarter: 2024Q3

REPORT INFORMATION
  Report Type: Spontaneous
  Country: US (occurrence: None)
  Receive Date: 20240821
  Receipt Date: 20240821
  Transmission Date: 20241017
  Serious: No
  Sender: Public
  Company Number: None

PATIENT
  Age: 42 Year
  Sex: Male
  Weight: 63.5 kg

DRUGS (1)
  1. TERIPARATIDE [Suspect]
     Active Substance: TERIPARATIDE
     Indication: Senile osteoporosis
     Dosage: OTHER STRENGTH : 600 MCG/2.4ML;?FREQUENCY : AS DIRECTED;??INJECT 20 MCG SUBCUTAB=NEOUSLY DAILY INTO
     Route: 058
     Dates: start: 202407

REACTIONS (3)
  - Hypotension [None]
  - Dizziness [None]
  - Therapy interrupted [None]
